FAERS Safety Report 14569042 (Version 3)
Quarter: 2021Q2

REPORT INFORMATION
  Report Type: Report from Study
  Country: JP (occurrence: JP)
  Receive Date: 20180223
  Receipt Date: 20210430
  Transmission Date: 20210716
  Serious: Yes (Hospitalization, Other)
  Sender: FDA-Public Use
  Company Number: JP-TAKEDA-2018TUS004792

PATIENT
  Age: 79 Year
  Sex: Male
  Weight: 61 kg

DRUGS (23)
  1. PONATINIB [Suspect]
     Active Substance: PONATINIB
     Dosage: 45 MILLIGRAM, QD
     Route: 048
     Dates: start: 20190112, end: 20190118
  2. PONATINIB [Suspect]
     Active Substance: PONATINIB
     Dosage: 30 MILLIGRAM, QD
     Route: 048
     Dates: start: 20181113, end: 20181213
  3. PONATINIB [Suspect]
     Active Substance: PONATINIB
     Dosage: 45 MILLIGRAM, QD
     Route: 048
     Dates: start: 20181214, end: 20190111
  4. DASATINIB MONOHYDRATE [Concomitant]
     Active Substance: DASATINIB
     Dosage: UNK
     Route: 065
     Dates: start: 20120706, end: 20160211
  5. PONATINIB [Suspect]
     Active Substance: PONATINIB
     Indication: CHRONIC MYELOID LEUKAEMIA
     Dosage: 15 MILLIGRAM, QD
     Route: 048
     Dates: start: 20170208, end: 20170212
  6. PONATINIB [Suspect]
     Active Substance: PONATINIB
     Dosage: 15 MILLIGRAM, QOD
     Route: 048
     Dates: start: 20170218, end: 20170316
  7. PONATINIB [Suspect]
     Active Substance: PONATINIB
     Dosage: 30 MILLIGRAM, QD
     Route: 048
     Dates: start: 20170413, end: 20171008
  8. PONATINIB [Suspect]
     Active Substance: PONATINIB
     Dosage: 45 MILLIGRAM, QD
     Route: 048
     Dates: start: 20171111, end: 20180302
  9. PONATINIB [Suspect]
     Active Substance: PONATINIB
     Dosage: 15 MILLIGRAM, QD
     Route: 048
     Dates: start: 20181102, end: 20181112
  10. DASATINIB MONOHYDRATE [Concomitant]
     Active Substance: DASATINIB
     Indication: CHRONIC MYELOID LEUKAEMIA
     Dosage: UNK
     Route: 065
     Dates: start: 20110219, end: 20110602
  11. PONATINIB [Suspect]
     Active Substance: PONATINIB
     Dosage: 30 MILLIGRAM, QD
     Route: 048
     Dates: start: 20171014, end: 20171019
  12. PONATINIB [Suspect]
     Active Substance: PONATINIB
     Dosage: 30 MILLIGRAM, QD
     Route: 048
     Dates: start: 20171026, end: 20171110
  13. BAYASPIRIN [Concomitant]
     Active Substance: ASPIRIN
     Indication: PROPHYLAXIS
     Dosage: UNK
     Route: 065
     Dates: start: 20181202
  14. HYDROXYCARBAMIDE [Concomitant]
     Active Substance: HYDROXYUREA
     Dosage: UNK
     Route: 065
     Dates: start: 20170411, end: 20190326
  15. PONATINIB [Suspect]
     Active Substance: PONATINIB
     Dosage: 15 MILLIGRAM
     Route: 048
     Dates: start: 20170317, end: 20170330
  16. PONATINIB [Suspect]
     Active Substance: PONATINIB
     Dosage: 15 MILLIGRAM
     Route: 048
     Dates: start: 20170331, end: 20170412
  17. PONATINIB [Suspect]
     Active Substance: PONATINIB
     Dosage: 30 MILLIGRAM, QD
     Route: 048
     Dates: start: 20180303, end: 20180420
  18. PONATINIB [Suspect]
     Active Substance: PONATINIB
     Dosage: 45 MILLIGRAM, QD
     Route: 048
     Dates: start: 20180421, end: 20180511
  19. EDOXABAN [Concomitant]
     Active Substance: EDOXABAN TOSYLATE
     Indication: PROPHYLAXIS
     Dosage: UNK
     Route: 065
     Dates: start: 20180628, end: 20190110
  20. PONATINIB [Suspect]
     Active Substance: PONATINIB
     Dosage: 45 MILLIGRAM, QD
     Route: 048
     Dates: start: 20190119, end: 20190326
  21. DASATINIB MONOHYDRATE [Concomitant]
     Active Substance: DASATINIB
     Dosage: UNK
     Dates: start: 20110916, end: 20120412
  22. PONATINIB [Suspect]
     Active Substance: PONATINIB
     Dosage: 15 MILLIGRAM
     Route: 048
     Dates: start: 20180512, end: 20181024
  23. DASATINIB MONOHYDRATE [Concomitant]
     Active Substance: DASATINIB
     Dosage: UNK
     Route: 065
     Dates: start: 20160909, end: 20170207

REACTIONS (6)
  - Atrial fibrillation [Not Recovered/Not Resolved]
  - Cerebral infarction [Recovered/Resolved]
  - Oedema [Recovered/Resolved]
  - Duodenal ulcer [Recovering/Resolving]
  - Haemarthrosis [Recovering/Resolving]
  - Lipase increased [Recovering/Resolving]

NARRATIVE: CASE EVENT DATE: 20170213
